FAERS Safety Report 6750436-9 (Version None)
Quarter: 2010Q2

REPORT INFORMATION
  Report Type: 
  Country: None (occurrence: None)
  Receive Date: 20100527
  Receipt Date: 20100514
  Transmission Date: 20101027
  Serious: Yes (Death)
  Sender: FDA-Public Use
  Company Number: AMAG201000244

PATIENT
  Age: 84 Year
  Sex: Male
  Weight: 57 kg

DRUGS (3)
  1. FERAHEME [Suspect]
  2. GADOTERIDOL (GADOTERIDOL) [Suspect]
     Dosage: 11.4 ML, (0.2MG/KG) SINGLE
     Dates: start: 20100223, end: 20100223
  3. GADOTERIDOL (GADOTERIDOL) [Suspect]
     Dosage: 11.4 ML, (0.2MG/KG) SINGLE
     Dates: start: 20100419, end: 20100419

REACTIONS (2)
  - BRAIN STEM GLIOMA [None]
  - NEOPLASM PROGRESSION [None]
